FAERS Safety Report 25507658 (Version 3)
Quarter: 2025Q3

REPORT INFORMATION
  Report Type: Spontaneous
  Country: EU (occurrence: EU)
  Receive Date: 20250703
  Receipt Date: 20250905
  Transmission Date: 20251020
  Serious: Yes (Other)
  Sender: AMGEN
  Company Number: EU-002147023-NVSC2025BE104308

PATIENT
  Age: 23 Year
  Sex: Female

DRUGS (1)
  1. AIMOVIG [Suspect]
     Active Substance: ERENUMAB-AOOE
     Indication: Migraine
     Dosage: 140 MG, Q4W
     Route: 058
     Dates: start: 20240708

REACTIONS (2)
  - Dermatosis [Unknown]
  - Eczema eyelids [Unknown]

NARRATIVE: CASE EVENT DATE: 20250601
